FAERS Safety Report 5055326-8 (Version None)
Quarter: 2006Q3

REPORT INFORMATION
  Report Type: 
  Country: None (occurrence: None)
  Receive Date: 20060714
  Receipt Date: 20060626
  Transmission Date: 20061208
  Serious: Yes (Death)
  Sender: FDA-Public Use
  Company Number: 227281

PATIENT
  Sex: Male

DRUGS (3)
  1. MABTHERA(RITUXIMAB) CONC FOR SOLUTION FOR INFUSION [Suspect]
     Indication: B-CELL LYMPHOMA
     Dosage: 656 MG, INTRAVENOUS
     Route: 042
     Dates: start: 20060623, end: 20060623
  2. CYTOXAN [Suspect]
     Indication: DRUG USE FOR UNKNOWN INDICATION
     Dosage: INTRAVENOUS
     Route: 042
     Dates: start: 20060623
  3. VINCRISTINE [Suspect]
     Indication: DRUG USE FOR UNKNOWN INDICATION
     Dosage: INTRAVENOUS
     Route: 042
     Dates: start: 20060623

REACTIONS (2)
  - CHEST PAIN [None]
  - SUDDEN DEATH [None]
